FAERS Safety Report 10206197 (Version 1)
Quarter: 2014Q2

REPORT INFORMATION
  Report Type: Spontaneous
  Country: US (occurrence: None)
  Receive Date: 20140527
  Receipt Date: 20140527
  Transmission Date: 20141212
  Serious: Yes (Other)
  Sender: FDA-Public Use
  Company Number: None

PATIENT
  Age: 11 Year
  Sex: Male
  Weight: 27.67 kg

DRUGS (1)
  1. METHYLPHENIDATE [Suspect]
     Indication: ATTENTION DEFICIT/HYPERACTIVITY DISORDER
     Route: 048
     Dates: start: 20140509, end: 20140521

REACTIONS (7)
  - Headache [None]
  - Abnormal behaviour [None]
  - Feeling jittery [None]
  - Rhinorrhoea [None]
  - Throat irritation [None]
  - Crying [None]
  - Aggression [None]
